FAERS Safety Report 8494160-3 (Version None)
Quarter: 2012Q3

REPORT INFORMATION
  Report Type: 
  Country: None (occurrence: None)
  Receive Date: 20120709
  Receipt Date: 20120702
  Transmission Date: 20120928
  Serious: Yes (Other)
  Sender: FDA-Public Use
  Company Number: PHEH2012US013359

PATIENT
  Sex: Male

DRUGS (4)
  1. LODOSYN [Concomitant]
     Dosage: 25 MG, UNK
  2. REQUIP XL [Concomitant]
     Dosage: 8 MG, UNK
  3. ZOLOFT [Concomitant]
     Dosage: 100 MG, UNK
  4. STALEVO 100 [Suspect]
     Indication: PARKINSON'S DISEASE
     Dosage: 125 MG, QD
     Dates: start: 20040205

REACTIONS (1)
  - INTRAOCULAR MELANOMA [None]
